FAERS Safety Report 7301654-2 (Version None)
Quarter: 2011Q1

REPORT INFORMATION
  Report Type: 
  Country: None (occurrence: None)
  Receive Date: 20110218
  Receipt Date: 20110207
  Transmission Date: 20110831
  Serious: Yes (Hospitalization)
  Sender: FDA-Public Use
  Company Number: US-ELI_LILLY_AND_COMPANY-US201102002280

PATIENT
  Age: 33 Year
  Sex: Male

DRUGS (3)
  1. ZYPREXA ZYDIS [Suspect]
     Indication: BIPOLAR DISORDER
     Dosage: 40 MG, UNK
     Dates: start: 20110203, end: 20110207
  2. ZYPREXA [Suspect]
     Indication: BIPOLAR DISORDER
     Dosage: 15 MG, UNK
     Route: 048
  3. COGENTIN [Concomitant]
     Indication: ANXIETY
     Dosage: 1 MG, 2/D
     Dates: start: 20110203, end: 20110207

REACTIONS (8)
  - INCONTINENCE [None]
  - DYSPNOEA [None]
  - HYPERHIDROSIS [None]
  - MENTAL DISORDER [None]
  - MYALGIA [None]
  - FEELING HOT [None]
  - MENTAL STATUS CHANGES [None]
  - OVERDOSE [None]
